FAERS Safety Report 4528650-2 (Version None)
Quarter: 2004Q4

REPORT INFORMATION
  Report Type: 
  Country: None (occurrence: None)
  Receive Date: 20041216
  Receipt Date: 20041215
  Transmission Date: 20050328
  Serious: Yes (Hospitalization)
  Sender: FDA-Public Use
  Company Number: 200421892GDDC

PATIENT
  Age: 51 Year
  Sex: Male

DRUGS (9)
  1. NICODERM CQ [Suspect]
     Indication: SMOKING CESSATION THERAPY
     Route: 062
     Dates: start: 20010101, end: 20030101
  2. ANTI-PSYCHOTIC MEDICATION [Concomitant]
     Dates: end: 20030101
  3. NITROGLYCERIN [Concomitant]
     Route: 061
  4. QUETIAPINE FUMARATE [Concomitant]
     Indication: DEPRESSION
     Route: 048
  5. VENLAFAXINE HYDROCHLORIDE [Concomitant]
     Indication: DEPRESSION
     Route: 048
  6. CLONAZEPAM [Concomitant]
     Route: 048
  7. FLURAZEPAM HCL [Concomitant]
     Indication: INSOMNIA
     Route: 048
  8. ATORVASTATIN [Concomitant]
     Route: 048
  9. LEVOTHYROXINE SODIUM [Concomitant]
     Indication: THYROID DISORDER
     Route: 048

REACTIONS (1)
  - BRAIN OEDEMA [None]
